FAERS Safety Report 9630835 (Version 6)
Quarter: 2013Q4

REPORT INFORMATION
  Report Type: Spontaneous
  Country: US (occurrence: US)
  Receive Date: 20131018
  Receipt Date: 20131128
  Transmission Date: 20140711
  Serious: Yes (Death, Hospitalization)
  Sender: FDA-Public Use
  Company Number: US-JNJFOC-20131008858

PATIENT
  Age: 77 Year
  Sex: Male
  Weight: 92.99 kg

DRUGS (13)
  1. XARELTO [Suspect]
     Indication: PULMONARY EMBOLISM
     Dosage: FOR 3 WEEKS
     Route: 048
     Dates: start: 20130812, end: 20130904
  2. XARELTO [Suspect]
     Indication: PULMONARY EMBOLISM
     Route: 048
     Dates: start: 20130904, end: 20130925
  3. LEFLUNOMIDE [Concomitant]
     Indication: RHEUMATOID ARTHRITIS
     Route: 048
  4. METOPROLOL [Concomitant]
     Indication: HYPERTENSION
     Route: 048
     Dates: start: 201309
  5. PREDNISONE [Concomitant]
     Indication: RHEUMATOID ARTHRITIS
     Dosage: 12.5 (UNITS UNSPECIFIED)
     Route: 048
  6. ORENCIA [Concomitant]
     Indication: RHEUMATOID ARTHRITIS
     Route: 065
     Dates: start: 201308
  7. OXYCONTIN [Concomitant]
     Indication: RHEUMATOID ARTHRITIS
     Route: 048
  8. OXYCONTIN [Concomitant]
     Indication: BACK PAIN
     Route: 048
  9. TUDORZA [Concomitant]
     Indication: EMPHYSEMA
     Route: 055
     Dates: start: 2013
  10. TUDORZA [Concomitant]
     Indication: CHRONIC OBSTRUCTIVE PULMONARY DISEASE
     Route: 055
     Dates: start: 2013
  11. ZOCOR [Concomitant]
     Indication: ASTHMA
     Route: 048
  12. LEXAPRO [Concomitant]
     Indication: DEPRESSION
     Route: 065
  13. DIGOXIN [Concomitant]
     Indication: ARRHYTHMIA
     Route: 065
     Dates: start: 2011

REACTIONS (3)
  - Haemorrhage intracranial [Fatal]
  - Fall [Unknown]
  - Head injury [Unknown]
